FAERS Safety Report 22664435 (Version 1)
Quarter: 2023Q2

REPORT INFORMATION
  Report Type: Spontaneous
  Country: US (occurrence: None)
  Receive Date: 20230630
  Receipt Date: 20230630
  Transmission Date: 20230722
  Serious: Yes (unspecified)
  Sender: FDA-Public Use
  Company Number: None

PATIENT
  Age: 25 Year
  Sex: Female
  Weight: 101.25 kg

DRUGS (3)
  1. CEPHALEXIN [Suspect]
     Active Substance: CEPHALEXIN
     Indication: Urinary tract infection
     Dosage: OTHER QUANTITY : 10 ML;?FREQUENCY : EVERY 6 HOURS;?
     Route: 048
     Dates: start: 20230627, end: 20230629
  2. VITAMINS [Concomitant]
     Active Substance: VITAMINS
  3. CRANBERRY GUMMY [Concomitant]

REACTIONS (43)
  - Dizziness [None]
  - Disorientation [None]
  - Headache [None]
  - Disturbance in attention [None]
  - Diarrhoea [None]
  - Abdominal pain upper [None]
  - Decreased appetite [None]
  - Dyspepsia [None]
  - Gastrooesophageal reflux disease [None]
  - Anxiety [None]
  - Crying [None]
  - Mental disorder [None]
  - Depression [None]
  - Palpitations [None]
  - Muscular weakness [None]
  - Asthenia [None]
  - Muscle twitching [None]
  - Tendon disorder [None]
  - Bone disorder [None]
  - Tremor [None]
  - Insomnia [None]
  - Nervous system disorder [None]
  - Paraesthesia [None]
  - Tremor [None]
  - Insomnia [None]
  - Dyspnoea [None]
  - Dry mouth [None]
  - Dry throat [None]
  - Body temperature abnormal [None]
  - Feeling hot [None]
  - Fatigue [None]
  - Feeding disorder [None]
  - Product use complaint [None]
  - Dry skin [None]
  - Lip dry [None]
  - Dysphagia [None]
  - Muscle spasms [None]
  - Abdominal distension [None]
  - Paraesthesia [None]
  - Gait disturbance [None]
  - Product complaint [None]
  - Muscular weakness [None]
  - Pain in extremity [None]

NARRATIVE: CASE EVENT DATE: 20230627
